FAERS Safety Report 16325943 (Version 1)
Quarter: 2019Q2

REPORT INFORMATION
  Report Type: Spontaneous
  Country: FR (occurrence: FR)
  Receive Date: 20190517
  Receipt Date: 20190517
  Transmission Date: 20190711
  Serious: Yes (Other)
  Sender: FDA-Public Use
  Company Number: FR-FRESENIUS KABI-FK201905556

PATIENT
  Age: 54 Year
  Sex: Male

DRUGS (5)
  1. MORPHINE (MANUFACTURER UNKNOWN) [Suspect]
     Active Substance: MORPHINE
     Indication: PRODUCT USED FOR UNKNOWN INDICATION
  2. BROMAZEPAM [Suspect]
     Active Substance: BROMAZEPAM
     Indication: PRODUCT USED FOR UNKNOWN INDICATION
     Dosage: 8 TO 20 PILLS
     Route: 065
  3. MORPHINE (MANUFACTURER UNKNOWN) [Suspect]
     Active Substance: MORPHINE
     Route: 042
  4. COCAINE [Suspect]
     Active Substance: COCAINE
     Indication: PRODUCT USED FOR UNKNOWN INDICATION
     Dosage: 1-2 G
  5. COCAINE [Suspect]
     Active Substance: COCAINE
     Dosage: 1-2 G
     Route: 042

REACTIONS (3)
  - Drug dependence [Unknown]
  - Cluster headache [Unknown]
  - Product use issue [Unknown]
